FAERS Safety Report 19270352 (Version 1)
Quarter: 2021Q2

REPORT INFORMATION
  Report Type: Spontaneous
  Country: US (occurrence: US)
  Receive Date: 20210518
  Receipt Date: 20210518
  Transmission Date: 20210717
  Serious: Yes (Other)
  Sender: FDA-Public Use
  Company Number: None

PATIENT
  Sex: Male

DRUGS (2)
  1. LATANOPROST 0.005% [Suspect]
     Active Substance: LATANOPROST
  2. LUMIGAN [Suspect]
     Active Substance: BIMATOPROST

REACTIONS (1)
  - Ocular discomfort [None]
